FAERS Safety Report 23293259 (Version 1)
Quarter: 2023Q4

REPORT INFORMATION
  Report Type: Spontaneous
  Country: US (occurrence: US)
  Receive Date: 20231213
  Receipt Date: 20231213
  Transmission Date: 20240110
  Serious: No
  Sender: FDA-Public Use
  Company Number: US-NOVOPROD-1024121

PATIENT
  Sex: Female

DRUGS (1)
  1. LEVEMIR [Suspect]
     Active Substance: INSULIN DETEMIR
     Indication: Product used for unknown indication
     Dosage: 20 IU, TID (BEFORE EACH MEAL)

REACTIONS (5)
  - Malaise [Unknown]
  - Rash [Unknown]
  - Swelling [Unknown]
  - Weight increased [Unknown]
  - Product communication issue [Unknown]
